FAERS Safety Report 14597502 (Version 1)
Quarter: 2018Q1

REPORT INFORMATION
  Report Type: Spontaneous
  Country: PT (occurrence: PT)
  Receive Date: 20180305
  Receipt Date: 20180305
  Transmission Date: 20180509
  Serious: Yes (Disabling)
  Sender: FDA-Public Use
  Company Number: PT-BRISTOL-MYERS SQUIBB COMPANY-BMS-2018-018971

PATIENT
  Age: 82 Year
  Sex: Female
  Weight: 50 kg

DRUGS (7)
  1. ATORVASTATINA                      /01326102/ [Concomitant]
     Indication: PRODUCT USED FOR UNKNOWN INDICATION
     Dosage: 1 DF, DAILY
     Route: 048
  2. CONCOR [Concomitant]
     Active Substance: BISOPROLOL FUMARATE
     Indication: PRODUCT USED FOR UNKNOWN INDICATION
     Dosage: 1 DF, DAILY
     Route: 048
  3. ALDACTONE [Concomitant]
     Active Substance: SPIRONOLACTONE
     Indication: PRODUCT USED FOR UNKNOWN INDICATION
     Dosage: 0.5 DF, DAILY
     Route: 048
  4. ZESTRIL [Concomitant]
     Active Substance: LISINOPRIL
     Indication: PRODUCT USED FOR UNKNOWN INDICATION
     Dosage: 2 DF, DAILY
     Route: 048
  5. DAFLON (DIOSMIN/HESPERIDIN) [Concomitant]
     Active Substance: DIOSMIN\HESPERIDIN
     Indication: PRODUCT USED FOR UNKNOWN INDICATION
     Dosage: 1 DF, DAILY
     Route: 048
  6. ELIQUIS [Suspect]
     Active Substance: APIXABAN
     Indication: PRODUCT USED FOR UNKNOWN INDICATION
     Dosage: 2 DF, DAILY
     Route: 048
     Dates: start: 20171110, end: 20171115
  7. LASIX [Concomitant]
     Active Substance: FUROSEMIDE
     Indication: PRODUCT USED FOR UNKNOWN INDICATION
     Dosage: 2 DF, DAILY
     Route: 048

REACTIONS (3)
  - Productive cough [Recovering/Resolving]
  - Abdominal pain [Recovering/Resolving]
  - Fatigue [Recovering/Resolving]

NARRATIVE: CASE EVENT DATE: 201711
